FAERS Safety Report 16704941 (Version 4)
Quarter: 2020Q3

REPORT INFORMATION
  Report Type: Other
  Country: DE (occurrence: DE)
  Receive Date: 20190814
  Receipt Date: 20191227
  Transmission Date: 20201104
  Serious: Yes (Death, Hospitalization, Other)
  Sender: FDA-Public Use
  Company Number: DE-CELLTRION INC.-2019DE023718

PATIENT

DRUGS (14)
  1. POLATUZUMAB VEDOTIN. [Suspect]
     Active Substance: POLATUZUMAB VEDOTIN
     Indication: DIFFUSE LARGE B-CELL LYMPHOMA REFRACTORY
     Dosage: 162 MG, ONLY 1X GIVEN
     Route: 042
     Dates: start: 20190709, end: 20190709
  2. RITUXIMAB (UNKNOWN) [Suspect]
     Active Substance: RITUXIMAB
     Indication: DIFFUSE LARGE B-CELL LYMPHOMA REFRACTORY
     Dosage: 87.1 G
     Route: 042
     Dates: start: 20190705
  3. ALLOPURINOL. [Concomitant]
     Active Substance: ALLOPURINOL
     Indication: HYPERURICAEMIA
     Dosage: 150 MG, QD
     Route: 065
     Dates: end: 20190825
  4. PANTOZOL [Concomitant]
     Active Substance: PANTOPRAZOLE SODIUM
     Dosage: 40 MG, QD
     Route: 048
     Dates: end: 20190903
  5. L?THYROXINE [LEVOTHYROXINE] [Concomitant]
     Active Substance: LEVOTHYROXINE
     Indication: HYPOTHYROIDISM
     Dosage: UNK
  6. TOREM [TORASEMIDE] [Concomitant]
     Active Substance: TORSEMIDE
     Indication: OEDEMA
     Dosage: 10 MG, QD
     Route: 048
     Dates: end: 20190903
  7. VANCOMYCIN [Concomitant]
     Active Substance: VANCOMYCIN
     Indication: INFECTION
     Dosage: UNK
     Route: 042
     Dates: start: 20190704, end: 20190714
  8. COTRIM FORTE [Concomitant]
     Active Substance: SULFAMETHOXAZOLE\TRIMETHOPRIM
     Indication: PROPHYLAXIS
     Dosage: 1920 MG, QD
     Route: 048
     Dates: start: 20190725
  9. ACICLOVIR [Concomitant]
     Active Substance: ACYCLOVIR
     Indication: PROPHYLAXIS
     Dosage: 400 MG, QD
     Route: 048
     Dates: start: 20190711, end: 20190723
  10. POLATUZUMAB VEDOTIN. [Suspect]
     Active Substance: POLATUZUMAB VEDOTIN
     Dosage: ONLY 1X GIVEN
     Route: 042
     Dates: start: 20190709, end: 20190905
  11. MEROPENEM. [Concomitant]
     Active Substance: MEROPENEM
     Indication: INFECTION
     Dosage: UNK UNK, TID
     Route: 042
     Dates: start: 20190712, end: 20190903
  12. AMPHO MORONAL [Concomitant]
     Active Substance: AMPHOTERICIN B
     Dosage: 400 MG, QD
     Route: 048
     Dates: start: 20190705, end: 20190716
  13. TAZOBAC [Concomitant]
     Active Substance: PIPERACILLIN SODIUM\TAZOBACTAM SODIUM
     Indication: INFECTION
     Dosage: UNK
     Route: 042
     Dates: start: 20190703, end: 20190712
  14. POLATUZUMAB VEDOTIN. [Suspect]
     Active Substance: POLATUZUMAB VEDOTIN
     Dosage: 1.8 MG/KG
     Route: 042
     Dates: start: 20190709, end: 20190802

REACTIONS (13)
  - Leukopenia [Not Recovered/Not Resolved]
  - Disease progression [Fatal]
  - Pleural effusion [Unknown]
  - Hepatic failure [Recovered/Resolved]
  - Pneumonia fungal [Unknown]
  - Fall [Unknown]
  - Overdose [Unknown]
  - Polyneuropathy [Unknown]
  - Neutropenia [Not Recovered/Not Resolved]
  - Subileus [Unknown]
  - Hypercalcaemia [Not Recovered/Not Resolved]
  - Blood lactate dehydrogenase increased [Unknown]
  - Syncope [Recovered/Resolved]

NARRATIVE: CASE EVENT DATE: 20190710
